FAERS Safety Report 5824881-X (Version None)
Quarter: 2008Q3

REPORT INFORMATION
  Report Type: 
  Country: None (occurrence: None)
  Receive Date: 20080728
  Receipt Date: 20080724
  Transmission Date: 20090109
  Serious: Yes (Hospitalization, Other)
  Sender: FDA-Public Use
  Company Number: JP-BOEHRINGER INGELHEIM GMBH, GERMANY-2008-BP-11001NB

PATIENT
  Sex: Female
  Weight: 56 kg

DRUGS (13)
  1. MICARDIS [Suspect]
     Indication: HYPERTENSION
     Route: 048
     Dates: start: 20060512, end: 20080602
  2. ACTOS [Suspect]
     Route: 048
     Dates: start: 20020101, end: 20070508
  3. CRESTOR [Concomitant]
     Route: 048
     Dates: start: 20070413
  4. RONLAX (ETHYL LOFLAZEPATE) [Concomitant]
     Route: 048
     Dates: start: 20021007
  5. BASEN OD (VOGLIBOSE) [Concomitant]
     Route: 048
     Dates: start: 20051110
  6. COROHERSER-R (DILTIAZEM HYDROCHLORIDE) [Concomitant]
     Indication: HYPERTENSION
     Route: 048
  7. CALBLOCK [Concomitant]
     Indication: HYPERTENSION
     Route: 048
  8. BUFFERIN [Concomitant]
     Route: 048
     Dates: start: 20020621
  9. HERBESSER R [Concomitant]
     Indication: HYPERTENSION
     Route: 048
     Dates: start: 20021007
  10. HUMULIN N (INSULIN HUMAN(GENETICAL RECOMBINATION) [Concomitant]
     Dosage: 4 UT
     Route: 058
     Dates: start: 20040101
  11. LIPITOR [Concomitant]
     Route: 048
     Dates: start: 20040101, end: 20070413
  12. BLOSTAR M [Concomitant]
     Route: 048
     Dates: start: 20060501
  13. METFORMIN HYDROCHLORIDE [Concomitant]
     Route: 048

REACTIONS (3)
  - HYPERKALAEMIA [None]
  - OEDEMA [None]
  - RENAL FAILURE ACUTE [None]
